FAERS Safety Report 23034591 (Version 6)
Quarter: 2023Q4

REPORT INFORMATION
  Report Type: Report from Study
  Country: BR (occurrence: BR)
  Receive Date: 20231005
  Receipt Date: 20231207
  Transmission Date: 20240109
  Serious: Yes (Other)
  Sender: FDA-Public Use
  Company Number: BR-002147023-NVSC2023BR112524

PATIENT
  Age: 46 Year
  Sex: Female

DRUGS (13)
  1. KISQALI [Suspect]
     Active Substance: RIBOCICLIB
     Indication: Invasive breast carcinoma
     Dosage: UNK
     Route: 065
     Dates: start: 20230428
  2. KISQALI [Suspect]
     Active Substance: RIBOCICLIB
     Dosage: UNK
     Route: 065
     Dates: start: 20230429
  3. KISQALI [Suspect]
     Active Substance: RIBOCICLIB
     Dosage: UNK
     Route: 065
     Dates: start: 20230429
  4. KISQALI [Suspect]
     Active Substance: RIBOCICLIB
     Dosage: UNK
     Route: 065
  5. KISQALI [Suspect]
     Active Substance: RIBOCICLIB
     Dosage: UNK
     Route: 065
  6. KISQALI [Suspect]
     Active Substance: RIBOCICLIB
     Dosage: UNK
     Route: 065
  7. KISQALI [Suspect]
     Active Substance: RIBOCICLIB
     Dosage: UNK
     Route: 065
  8. KISQALI [Suspect]
     Active Substance: RIBOCICLIB
     Dosage: 3 DOSAGE FORM, QD
     Route: 065
     Dates: start: 20230429
  9. KISQALI [Suspect]
     Active Substance: RIBOCICLIB
     Dosage: 2 DOSAGE FORM
     Route: 065
     Dates: start: 20231024
  10. KISQALI [Suspect]
     Active Substance: RIBOCICLIB
     Dosage: UNK
     Route: 065
     Dates: start: 202305
  11. TAMOXIFEN [Suspect]
     Active Substance: TAMOXIFEN
     Indication: Product used for unknown indication
     Dosage: UNK
     Route: 065
     Dates: start: 20230429
  12. ANASTROZOLE [Suspect]
     Active Substance: ANASTROZOLE
     Indication: Product used for unknown indication
     Dosage: UNK
     Route: 065
  13. ANASTROZOLE [Suspect]
     Active Substance: ANASTROZOLE
     Dosage: UNK
     Route: 065

REACTIONS (46)
  - Osteomyelitis chronic [Unknown]
  - Movement disorder [Not Recovered/Not Resolved]
  - Bone pain [Not Recovered/Not Resolved]
  - Retching [Unknown]
  - Taste disorder [Unknown]
  - Saliva altered [Unknown]
  - Pollakiuria [Unknown]
  - Sluggishness [Unknown]
  - Nodule [Unknown]
  - Neoplasm [Recovering/Resolving]
  - Wound [Recovered/Resolved]
  - Renal pain [Unknown]
  - Gait disturbance [Recovering/Resolving]
  - Anaemia [Unknown]
  - Pain [Recovering/Resolving]
  - Decreased immune responsiveness [Unknown]
  - Secretion discharge [Unknown]
  - Abnormal faeces [Unknown]
  - Pain in extremity [Not Recovered/Not Resolved]
  - Malaise [Not Recovered/Not Resolved]
  - Arthralgia [Not Recovered/Not Resolved]
  - Abdominal pain upper [Not Recovered/Not Resolved]
  - Headache [Not Recovered/Not Resolved]
  - Dysgeusia [Unknown]
  - Dyspepsia [Unknown]
  - Decreased appetite [Unknown]
  - Nausea [Recovered/Resolved]
  - Peripheral swelling [Recovered/Resolved]
  - Urinary tract infection [Unknown]
  - Nausea [Not Recovered/Not Resolved]
  - Cough [Unknown]
  - Alopecia [Not Recovered/Not Resolved]
  - Vomiting [Unknown]
  - Pruritus [Unknown]
  - Illness [Unknown]
  - Skin lesion inflammation [Recovering/Resolving]
  - Limb discomfort [Unknown]
  - Injury [Unknown]
  - Visual impairment [Unknown]
  - Drug ineffective [Unknown]
  - Product packaging issue [Unknown]
  - Skin lesion [Recovering/Resolving]
  - Wound [Recovering/Resolving]
  - Fatigue [Not Recovered/Not Resolved]
  - Discouragement [Not Recovered/Not Resolved]
  - Blood urine present [Unknown]

NARRATIVE: CASE EVENT DATE: 20230401
